FAERS Safety Report 22889393 (Version 4)
Quarter: 2023Q4

REPORT INFORMATION
  Report Type: Spontaneous
  Country: US (occurrence: US)
  Receive Date: 20230831
  Receipt Date: 20231107
  Transmission Date: 20240109
  Serious: Yes (Other)
  Sender: FDA-Public Use
  Company Number: US-PFIZER INC-PV202300146315

PATIENT
  Age: 70 Year
  Sex: Female
  Weight: 67.7 kg

DRUGS (1)
  1. TIKOSYN [Suspect]
     Active Substance: DOFETILIDE
     Dosage: 250 UG, 2X/DAY, 1 CAPSULE (250 MCG TOTAL) BY MOUTH IN MORNING, 1 CAPSULE (250 MCG) BEFORE BEDTIME
     Route: 048

REACTIONS (3)
  - Atrial fibrillation [Recovered/Resolved]
  - Macular degeneration [Unknown]
  - Impaired driving ability [Unknown]
